FAERS Safety Report 7295275-8 (Version None)
Quarter: 2011Q1

REPORT INFORMATION
  Report Type: 
  Country: None (occurrence: None)
  Receive Date: 20110216
  Receipt Date: 20110211
  Transmission Date: 20110831
  Serious: Yes (Other)
  Sender: FDA-Public Use
  Company Number: GB-PFIZER INC-2011032969

PATIENT
  Age: 29 Year
  Sex: Female
  Weight: 64 kg

DRUGS (5)
  1. HYDROXOCOBALAMIN [Concomitant]
     Indication: VITAMIN B12 DEFICIENCY
     Dosage: UNK
     Dates: start: 20091216
  2. PREGABALIN [Suspect]
     Indication: PAIN
     Dosage: 2 CAPSULES TWICE DAILY
     Dates: start: 20080815
  3. FOLIC ACID [Concomitant]
     Indication: PREGNANCY
     Dosage: 1 TABLET ONCE DAILY
     Dates: start: 20090501
  4. ACETAMINOPHEN W/ CODEINE [Concomitant]
     Indication: PAIN
     Dosage: 2 TABLETS PRN
     Dates: start: 20090106
  5. OMEPRAZOLE [Concomitant]
     Indication: PROPHYLAXIS
     Dosage: 20 MG, DAILY
     Dates: start: 20081016

REACTIONS (5)
  - DRUG EXPOSURE DURING PREGNANCY [None]
  - FORCEPS DELIVERY [None]
  - INFECTION [None]
  - ANTEPARTUM HAEMORRHAGE [None]
  - PELVIC PAIN [None]
